FAERS Safety Report 10787178 (Version 2)
Quarter: 2015Q1

REPORT INFORMATION
  Report Type: Spontaneous
  Country: US (occurrence: US)
  Receive Date: 20150211
  Receipt Date: 20150313
  Transmission Date: 20150721
  Serious: Yes (Other)
  Sender: FDA-Public Use
  Company Number: US-JAZZ-2015-US-001850

PATIENT
  Age: 56 Year
  Sex: Female

DRUGS (6)
  1. XYREM [Suspect]
     Active Substance: SODIUM OXYBATE
     Indication: NARCOLEPSY
     Dosage: 2.5 G, SECOND DOSE
     Route: 048
     Dates: start: 201204, end: 201208
  2. XYREM [Suspect]
     Active Substance: SODIUM OXYBATE
     Dosage: 3.75 G, BID
     Route: 048
     Dates: start: 201401
  3. TRAMADOL [Suspect]
     Active Substance: TRAMADOL
     Indication: PAIN
     Dosage: UNKNOWN DOSE
     Route: 048
     Dates: start: 20150126, end: 20150202
  4. XYREM [Suspect]
     Active Substance: SODIUM OXYBATE
     Indication: CATAPLEXY
     Dosage: 2.25 G, FIRST DOSE
     Route: 048
     Dates: start: 201204, end: 201208
  5. XYREM [Suspect]
     Active Substance: SODIUM OXYBATE
     Dosage: 3 G, BID
     Route: 048
     Dates: start: 201208, end: 2013
  6. PLEXUS [Concomitant]
     Indication: WEIGHT DECREASED
     Dosage: UNK
     Route: 048

REACTIONS (7)
  - Gastrointestinal neoplasm [Recovering/Resolving]
  - Procedural nausea [Recovered/Resolved]
  - Dizziness [Recovered/Resolved]
  - Flatulence [Recovered/Resolved]
  - Night sweats [Not Recovered/Not Resolved]
  - Abdominal distension [Recovered/Resolved]
  - Gastric bypass [Recovering/Resolving]

NARRATIVE: CASE EVENT DATE: 2014
